FAERS Safety Report 6302679-6 (Version None)
Quarter: 2009Q3

REPORT INFORMATION
  Report Type: 
  Country: None (occurrence: None)
  Receive Date: 20090810
  Receipt Date: 20090729
  Transmission Date: 20100115
  Serious: Yes (Hospitalization, Other)
  Sender: FDA-Public Use
  Company Number: JP-NOVOPROD-289696

PATIENT
  Sex: Female
  Weight: 51 kg

DRUGS (13)
  1. NOVORAPID CHU FLEXPEN [Suspect]
     Indication: TYPE 2 DIABETES MELLITUS
     Route: 058
  2. INNOLET 30R CHU [Suspect]
     Indication: TYPE 2 DIABETES MELLITUS
     Dates: start: 20020401, end: 20080214
  3. HUMALOG MIX                        /01293501/ [Suspect]
     Dosage: 12+4+4,TID
     Dates: start: 20080408
  4. ASPIRIN [Concomitant]
     Dosage: 100 MG, QD
     Route: 048
  5. PLAVIX [Concomitant]
     Dosage: 75 MG, QD
     Route: 048
  6. DIOVAN                             /01319601/ [Concomitant]
     Dosage: 20 MG, QD
     Route: 048
  7. ARTIST [Concomitant]
     Dosage: 10 MG, QD
     Route: 048
  8. DEPAS [Concomitant]
     Dosage: 1.5 MG, QD
     Route: 048
  9. PARIET [Concomitant]
     Dosage: 10 MG, QD
     Route: 048
  10. CRESTOR [Concomitant]
     Dosage: 2.5 MG, QD
     Route: 048
  11. EPADEL [Concomitant]
     Dosage: 1800 MG, QD
     Route: 048
  12. CONIEL [Concomitant]
     Dosage: 4 MG, QD
     Route: 048
  13. SIGMART [Concomitant]
     Dosage: 9 MG, QD
     Route: 048

REACTIONS (5)
  - ANTI-INSULIN ANTIBODY INCREASED [None]
  - DIABETES MELLITUS INADEQUATE CONTROL [None]
  - HYPOGLYCAEMIA [None]
  - NEUTROPHIL COUNT DECREASED [None]
  - PNEUMOCYSTIS JIROVECI PNEUMONIA [None]
